FAERS Safety Report 16084271 (Version 2)
Quarter: 2019Q2

REPORT INFORMATION
  Report Type: Spontaneous
  Country: US (occurrence: US)
  Receive Date: 20190318
  Receipt Date: 20190409
  Transmission Date: 20190711
  Serious: Yes (Death)
  Sender: FDA-Public Use
  Company Number: US-PFIZER INC-2019115080

PATIENT
  Age: 11 Year
  Sex: Female

DRUGS (6)
  1. CISPLATIN. [Suspect]
     Active Substance: CISPLATIN
     Indication: OSTEOSARCOMA
     Dosage: 150 MG/M2, 3 COURSES, AT 2 WEEKLY INTERVALS
     Route: 013
  2. CALCIUM FOLINATE [Concomitant]
     Active Substance: LEUCOVORIN CALCIUM
     Indication: OSTEOSARCOMA
  3. VINCRISTINE SULFATE. [Concomitant]
     Active Substance: VINCRISTINE SULFATE
     Indication: OSTEOSARCOMA
     Dosage: 2 MG, CYCLIC
     Route: 042
     Dates: end: 198111
  4. DOXORUBICIN HCL [Concomitant]
     Active Substance: DOXORUBICIN HYDROCHLORIDE
     Indication: OSTEOSARCOMA
     Dosage: 30 MG/M2, DAILY X 3 DAYS (9 COURSES)
     Dates: end: 198111
  5. METHOTREXATE. [Concomitant]
     Active Substance: METHOTREXATE
     Indication: OSTEOSARCOMA
     Dosage: 12500 MG/M2, CYCLIC, 9 COURSES
     Dates: end: 198111
  6. CISPLATIN. [Suspect]
     Active Substance: CISPLATIN
     Dosage: 150 MG/M2, CYCLIC
     Route: 013
     Dates: end: 198111

REACTIONS (2)
  - Acute myelomonocytic leukaemia [Fatal]
  - Second primary malignancy [Fatal]

NARRATIVE: CASE EVENT DATE: 198303
